FAERS Safety Report 5338316-7 (Version None)
Quarter: 2007Q3

REPORT INFORMATION
  Report Type: 
  Country: None (occurrence: None)
  Receive Date: 20070405
  Receipt Date: 20061113
  Transmission Date: 20080115
  Serious: No
  Sender: FDA-Public Use
  Company Number: US200611002255

PATIENT
  Age: 55 Year
  Sex: Female

DRUGS (8)
  1. PROZAC [Suspect]
     Dosage: 10 MG, 2/D
     Dates: start: 19940101
  2. CYMBALTA [Suspect]
     Indication: DEPRESSION
     Dates: start: 20060101, end: 20060101
  3. DIOVAN [Concomitant]
  4. PLAQUENIL [Concomitant]
  5. PRILOSEC [Concomitant]
  6. TRAZODONE HCL [Concomitant]
  7. PREDNISONE TAB [Concomitant]
  8. XANAX [Concomitant]

REACTIONS (2)
  - INFLAMMATION [None]
  - SUICIDAL IDEATION [None]
